FAERS Safety Report 13449170 (Version 1)
Quarter: 2017Q2

REPORT INFORMATION
  Report Type: Spontaneous
  Country: US (occurrence: US)
  Receive Date: 20170417
  Receipt Date: 20170417
  Transmission Date: 20170830
  Serious: No
  Sender: FDA-Public Use
  Company Number: US-MANNKIND CORPORATION-2017MK000014

PATIENT
  Sex: Female
  Weight: 70.37 kg

DRUGS (2)
  1. AFREZZA [Suspect]
     Active Substance: INSULIN HUMAN
     Indication: TYPE 1 DIABETES MELLITUS
     Dates: start: 201611
  2. AFREZZA [Suspect]
     Active Substance: INSULIN HUMAN
     Dates: start: 201611

REACTIONS (3)
  - Product physical issue [Unknown]
  - Visual impairment [Unknown]
  - Blood glucose increased [Unknown]
